FAERS Safety Report 23664295 (Version 2)
Quarter: 2024Q2

REPORT INFORMATION
  Report Type: Report from Study
  Country: HU (occurrence: HU)
  Receive Date: 20240322
  Receipt Date: 20240429
  Transmission Date: 20240716
  Serious: Yes (Life-Threatening, Hospitalization)
  Sender: FDA-Public Use
  Company Number: HU-AstraZeneca-2024A058505

PATIENT
  Age: 2 Month
  Sex: Male
  Weight: 3.6 kg

DRUGS (7)
  1. SYNAGIS [Suspect]
     Active Substance: PALIVIZUMAB
     Indication: Premature baby
     Dosage: 54.0MG UNKNOWN
     Route: 030
     Dates: end: 20240209
  2. IRON [Concomitant]
     Active Substance: IRON
     Indication: Product used for unknown indication
  3. FOLIC ACID [Concomitant]
     Active Substance: FOLIC ACID
     Indication: Product used for unknown indication
  4. VITAMIN D3 [Concomitant]
     Active Substance: CHOLECALCIFEROL
     Indication: Product used for unknown indication
  5. DIMETHICONE [Concomitant]
     Active Substance: DIMETHICONE
     Indication: Product used for unknown indication
  6. LACTOBACILLUS REUTERI [Concomitant]
     Active Substance: LACTOBACILLUS REUTERI
     Indication: Product used for unknown indication
  7. PREGOMIN [Concomitant]
     Indication: Product used for unknown indication

REACTIONS (4)
  - Bronchiolitis [Unknown]
  - Viral infection [Unknown]
  - Pyrexia [Not Recovered/Not Resolved]
  - Intentional dose omission [Unknown]

NARRATIVE: CASE EVENT DATE: 20240201
